FAERS Safety Report 9803033 (Version 1)
Quarter: 2014Q1

REPORT INFORMATION
  Report Type: Spontaneous
  Country: US (occurrence: US)
  Receive Date: 20140108
  Receipt Date: 20140108
  Transmission Date: 20141002
  Serious: No
  Sender: FDA-Public Use
  Company Number: US-JNJFOC-20140100524

PATIENT
  Age: 51 Year
  Sex: Male

DRUGS (3)
  1. INVEGA SUSTENNA [Suspect]
     Indication: SCHIZOPHRENIA
     Route: 030
  2. INVEGA SUSTENNA [Suspect]
     Indication: SCHIZOPHRENIA
     Dosage: 0.5 CC
     Route: 030
  3. NAPROXEN [Concomitant]
     Indication: ARTHRALGIA
     Route: 065

REACTIONS (3)
  - Aggression [Unknown]
  - Drug effect decreased [Unknown]
  - Dyskinesia [Unknown]
